FAERS Safety Report 21529348 (Version 1)
Quarter: 2022Q4

REPORT INFORMATION
  Report Type: Spontaneous
  Country: US (occurrence: US)
  Receive Date: 20221031
  Receipt Date: 20221031
  Transmission Date: 20230113
  Serious: No
  Sender: FDA-Public Use
  Company Number: US-ViiV Healthcare Limited-87111

PATIENT
  Age: 26 Year
  Sex: Male

DRUGS (2)
  1. RILPIVIRINE [Suspect]
     Active Substance: RILPIVIRINE
     Indication: Product used for unknown indication
     Dosage: UNK 400/600MG
     Route: 030
     Dates: start: 20221017, end: 20221017
  2. CABOTEGRAVIR [Suspect]
     Active Substance: CABOTEGRAVIR
     Indication: Product used for unknown indication
     Dosage: UNK 400/600MG
     Route: 030
     Dates: start: 20221017, end: 20221017

REACTIONS (4)
  - Injection site pain [Unknown]
  - Headache [Unknown]
  - Nasal congestion [Unknown]
  - Fatigue [Unknown]

NARRATIVE: CASE EVENT DATE: 20221017
